FAERS Safety Report 8089253-9 (Version None)
Quarter: 2012Q1

REPORT INFORMATION
  Report Type: 
  Country: None (occurrence: None)
  Receive Date: 20120128
  Receipt Date: 20110728
  Transmission Date: 20120608
  Serious: No
  Sender: FDA-Public Use
  Company Number: US-ABBOTT-11P-163-0834725-00

PATIENT
  Sex: Male

DRUGS (6)
  1. HYDROCHLOROTHIAZIDE [Concomitant]
     Indication: HYPERTENSION
  2. TRIAMCINOLONE [Concomitant]
     Indication: PSORIASIS
  3. LISINOPRIL [Concomitant]
     Indication: HYPERTENSION
  4. HUMIRA [Suspect]
     Indication: PSORIASIS
     Dosage: STOPPED AFTER 5 INJECTIONS
     Dates: start: 20110101
  5. ATENOLOL [Concomitant]
     Indication: HYPERTENSION
  6. FISH OIL [Concomitant]
     Indication: VITAMIN SUPPLEMENTATION

REACTIONS (5)
  - HYPOAESTHESIA [None]
  - GAIT DISTURBANCE [None]
  - RED BLOOD CELL COUNT DECREASED [None]
  - SLEEP DISORDER [None]
  - SPEECH DISORDER [None]
